FAERS Safety Report 5708691-X (Version None)
Quarter: 2008Q2

REPORT INFORMATION
  Report Type: 
  Country: None (occurrence: None)
  Receive Date: 20080417
  Receipt Date: 20080321
  Transmission Date: 20081010
  Serious: No
  Sender: FDA-Public Use
  Company Number: US-BOEHRINGER INGELHEIM GMBH, GERMANY-2008-BP-04563BP

PATIENT
  Age: 77 Year
  Sex: Male
  Weight: 96 kg

DRUGS (2)
  1. MICARDIS [Suspect]
     Indication: HYPERTENSION
     Dates: start: 20080211, end: 20080220
  2. LOPID [Suspect]
     Dates: start: 20080211, end: 20080220

REACTIONS (3)
  - BACK PAIN [None]
  - DIZZINESS [None]
  - OEDEMA PERIPHERAL [None]
